FAERS Safety Report 7683902-2 (Version None)
Quarter: 2011Q3

REPORT INFORMATION
  Report Type: 
  Country: None (occurrence: None)
  Receive Date: 20110815
  Receipt Date: 20110809
  Transmission Date: 20111222
  Serious: Yes (Other)
  Sender: FDA-Public Use
  Company Number: US-PFIZER INC-2011143668

PATIENT
  Age: 84 Year
  Sex: Female

DRUGS (5)
  1. METFORMIN HCL [Suspect]
     Dosage: UNK
  2. INSULIN [Suspect]
     Dosage: UNK
  3. NEURONTIN [Concomitant]
     Dosage: UNK
  4. RISPERIDONE [Suspect]
     Dosage: 0.5 MG, 2X/DAY (0.5 MG IN THE MORNING AND 0.5 MG IN THE EVENING)
  5. TRAZODONE [Concomitant]
     Dosage: UNK

REACTIONS (5)
  - DIARRHOEA [None]
  - CLOSTRIDIAL INFECTION [None]
  - BLOOD GLUCOSE DECREASED [None]
  - KIDNEY INFECTION [None]
  - DELIRIUM [None]
